FAERS Safety Report 4415219-3 (Version None)
Quarter: 2004Q3

REPORT INFORMATION
  Report Type: 
  Country: None (occurrence: None)
  Receive Date: 20040804
  Receipt Date: 20040628
  Transmission Date: 20050211
  Serious: Yes (Other)
  Sender: FDA-Public Use
  Company Number: US-GLAXOSMITHKLINE-A0516178A

PATIENT
  Age: 44 Year
  Sex: Female

DRUGS (1)
  1. LAMICTAL [Suspect]
     Route: 048
     Dates: start: 20040415, end: 20040505

REACTIONS (5)
  - ARTHRALGIA [None]
  - ASTHENIA [None]
  - LYMPHADENOPATHY [None]
  - MALAISE [None]
  - RASH [None]
